FAERS Safety Report 23833401 (Version 1)
Quarter: 2024Q2

REPORT INFORMATION
  Report Type: Other
  Country: FR (occurrence: FR)
  Receive Date: 20240508
  Receipt Date: 20240508
  Transmission Date: 20240716
  Serious: Yes (Hospitalization)
  Sender: FDA-Public Use
  Company Number: None

PATIENT
  Age: 72 Year
  Sex: Male

DRUGS (2)
  1. OMNIPAQUE [Suspect]
     Active Substance: IOHEXOL
     Indication: Computerised tomogram
     Dosage: 1 DF, TOTAL
     Route: 058
     Dates: start: 20230305, end: 20230311
  2. CALCIPARINE [Suspect]
     Active Substance: HEPARIN CALCIUM
     Indication: Thrombosis prophylaxis
     Dosage: 1 DF
     Route: 042
     Dates: start: 20230307

REACTIONS (1)
  - Vascular purpura [Recovered/Resolved]

NARRATIVE: CASE EVENT DATE: 20230311
